FAERS Safety Report 21475593 (Version 1)
Quarter: 2022Q4

REPORT INFORMATION
  Report Type: Spontaneous
  Country: US (occurrence: US)
  Receive Date: 20221019
  Receipt Date: 20221019
  Transmission Date: 20230112
  Serious: No
  Sender: FDA-Public Use
  Company Number: US-SA-2022SA427859

PATIENT
  Age: 39 Year
  Sex: Female

DRUGS (1)
  1. DUPIXENT [Suspect]
     Active Substance: DUPILUMAB
     Dosage: 300 MG, OTHER
     Route: 058
     Dates: start: 202209

REACTIONS (4)
  - Headache [Unknown]
  - Eye pain [Unknown]
  - Photophobia [Unknown]
  - Vision blurred [Unknown]

NARRATIVE: CASE EVENT DATE: 20221013
